FAERS Safety Report 4726835-3 (Version None)
Quarter: 2005Q3

REPORT INFORMATION
  Report Type: 
  Country: None (occurrence: None)
  Receive Date: 20050726
  Receipt Date: 20050712
  Transmission Date: 20060218
  Serious: Yes (Hospitalization)
  Sender: FDA-Public Use
  Company Number: GBR-2005-0001795

PATIENT
  Sex: Female

DRUGS (2)
  1. OXYCONTIN [Suspect]
     Indication: OSTEOARTHRITIS
     Dosage: 40 MG, DAILY, ORAL
     Route: 048
     Dates: start: 20050501, end: 20050712
  2. CIPROFLOXACIN [Suspect]
     Dates: start: 20050711, end: 20050712

REACTIONS (1)
  - PANCREATITIS [None]
